FAERS Safety Report 6076460-X (Version None)
Quarter: 2009Q1

REPORT INFORMATION
  Report Type: 
  Country: None (occurrence: None)
  Receive Date: 20090213
  Receipt Date: 20090210
  Transmission Date: 20090719
  Serious: Yes (Hospitalization)
  Sender: FDA-Public Use
  Company Number: JP-JNJFOC-20090202518

PATIENT
  Age: 9 Decade
  Sex: Female

DRUGS (2)
  1. CRAVIT [Suspect]
     Indication: INFLUENZA
     Route: 048
  2. TAMIFLU [Suspect]
     Indication: DRUG USE FOR UNKNOWN INDICATION
     Route: 065

REACTIONS (2)
  - CONFUSIONAL STATE [None]
  - DELIRIUM [None]
